FAERS Safety Report 4898153-4 (Version None)
Quarter: 2006Q1

REPORT INFORMATION
  Report Type: 
  Country: None (occurrence: None)
  Receive Date: 20060106
  Receipt Date: 20050907
  Transmission Date: 20060701
  Serious: Yes (Other)
  Sender: FDA-Public Use
  Company Number: HQWYE478515SEP05

PATIENT
  Age: 26 Year
  Sex: Male
  Weight: 99.88 kg

DRUGS (1)
  1. PRIMATENE MIST [Suspect]
     Indication: ASTHMA
     Dosage: 1 PUFF ONE TIME, INHALATION
     Route: 055
     Dates: start: 20050907, end: 20050907

REACTIONS (1)
  - THROAT IRRITATION [None]
